FAERS Safety Report 10428349 (Version 1)
Quarter: 2014Q3

REPORT INFORMATION
  Report Type: Spontaneous
  Country: US (occurrence: None)
  Receive Date: 20140829
  Receipt Date: 20140829
  Transmission Date: 20150326
  Serious: Yes (Other)
  Sender: FDA-Public Use
  Company Number: 20140536

PATIENT
  Age: 80 Year

DRUGS (1)
  1. VENOFER [Suspect]
     Active Substance: IRON SUCROSE
     Indication: ANAEMIA
     Dosage: 5 WK
     Route: 041
     Dates: start: 201105, end: 201211

REACTIONS (2)
  - Pelvic fracture [None]
  - Syncope [None]
